FAERS Safety Report 10384490 (Version 2)
Quarter: 2014Q3

REPORT INFORMATION
  Report Type: Spontaneous
  Country: US (occurrence: US)
  Receive Date: 20140814
  Receipt Date: 20140814
  Transmission Date: 20150326
  Serious: Yes (Hospitalization, Other)
  Sender: FDA-Public Use
  Company Number: US-009507513-2009SP030816

PATIENT
  Sex: Female
  Weight: 88 kg

DRUGS (4)
  1. LEVSIN [Concomitant]
     Active Substance: HYOSCYAMINE SULFATE
     Dosage: DISCONTINUED2 WEEKS PRIOR TO ADMISSION DUE TO CONSTIPATION
     Dates: end: 200710
  2. CYMBALTA [Concomitant]
     Active Substance: DULOXETINE HYDROCHLORIDE
     Dosage: DISCONTINUED 2 WEEKS PRIOR TO ADMISSION DUE TO NAUSEA
     Dates: end: 200710
  3. NUVARING [Suspect]
     Active Substance: ETHINYL ESTRADIOL\ETONOGESTREL
     Indication: CONTRACEPTION
     Route: 067
     Dates: start: 200703, end: 20071019
  4. ALEVE [Concomitant]
     Active Substance: NAPROXEN SODIUM
     Indication: HEADACHE
     Dosage: 2 PILLS, 2 DAYS PER WEEK
     Dates: start: 200709, end: 200710

REACTIONS (9)
  - Lower gastrointestinal haemorrhage [Unknown]
  - Cerebrovascular accident [Recovering/Resolving]
  - Carotid artery occlusion [Unknown]
  - Proctalgia [Unknown]
  - High density lipoprotein decreased [Unknown]
  - Retinal haemorrhage [Unknown]
  - Rectal haemorrhage [Unknown]
  - Blood potassium decreased [Recovered/Resolved]
  - Low density lipoprotein increased [Unknown]

NARRATIVE: CASE EVENT DATE: 200709
